FAERS Safety Report 6141829-1 (Version None)
Quarter: 2009Q2

REPORT INFORMATION
  Report Type: 
  Country: None (occurrence: None)
  Receive Date: 20090402
  Receipt Date: 20090324
  Transmission Date: 20091009
  Serious: Yes (Hospitalization)
  Sender: FDA-Public Use
  Company Number: FR-PFIZER-2009188415

PATIENT

DRUGS (7)
  1. SALAZOPYRINE [Suspect]
     Indication: ARTHRITIS REACTIVE
     Dosage: UNK G, 1X/DAY
     Route: 048
  2. ACETYLSALICYLATE LYSINE [Concomitant]
  3. SOTALOL HYDROCHLORIDE [Concomitant]
  4. DIGOXIN [Concomitant]
  5. SERENOA REPENS EXTRACT [Concomitant]
  6. PHLOROGLUCINOL [Concomitant]
  7. MANIDIPINE [Concomitant]

REACTIONS (3)
  - DYSPNOEA [None]
  - HAEMOPTYSIS [None]
  - INTERSTITIAL LUNG DISEASE [None]
